FAERS Safety Report 25224179 (Version 1)
Quarter: 2025Q2

REPORT INFORMATION
  Report Type: Other
  Country: FR (occurrence: FR)
  Receive Date: 20250422
  Receipt Date: 20250422
  Transmission Date: 20250717
  Serious: Yes (Hospitalization, Other)
  Sender: ZYDUS PHARM
  Company Number: None

PATIENT

DRUGS (3)
  1. ATORVASTATIN [Suspect]
     Active Substance: ATORVASTATIN
     Indication: Hypercholesterolaemia
     Route: 048
  2. KARDEGIC [Suspect]
     Active Substance: ASPIRIN DL-LYSINE
     Indication: Prophylaxis
     Route: 048
     Dates: start: 2008
  3. PRALUENT [Suspect]
     Active Substance: ALIROCUMAB
     Indication: Prophylaxis
     Route: 058
     Dates: start: 20241001, end: 20241106

REACTIONS (2)
  - Haemoptysis [Recovered/Resolved]
  - Epistaxis [Recovered/Resolved]

NARRATIVE: CASE EVENT DATE: 20241018
